FAERS Safety Report 4709003-0 (Version None)
Quarter: 2005Q3

REPORT INFORMATION
  Report Type: 
  Country: None (occurrence: None)
  Receive Date: 20050707
  Receipt Date: 20050627
  Transmission Date: 20060218
  Serious: Yes (Death, Other)
  Sender: FDA-Public Use
  Company Number: HQWYE708127JUN05

PATIENT
  Sex: Female

DRUGS (1)
  1. PREMARIN [Suspect]
     Dosage: UNSPECIFIED DOSE, ORAL
     Route: 048

REACTIONS (1)
  - BREAST CANCER FEMALE [None]
